FAERS Safety Report 5937160-7 (Version None)
Quarter: 2008Q4

REPORT INFORMATION
  Report Type: 
  Country: None (occurrence: None)
  Receive Date: 20081031
  Receipt Date: 20081029
  Transmission Date: 20090506
  Serious: Yes (Other)
  Sender: FDA-Public Use
  Company Number: US-BAYER-200812344BCC

PATIENT
  Age: 55 Year
  Sex: Male
  Weight: 145 kg

DRUGS (11)
  1. ASPIRIN [Suspect]
     Indication: CARDIOVASCULAR EVENT PROPHYLAXIS
     Dosage: TOTAL DAILY DOSE: 81 MG  UNIT DOSE: 81 MG
     Route: 048
     Dates: start: 20080101, end: 20080101
  2. ONE-A-DAY ALL DAY ENERGY [Suspect]
     Indication: VITAMIN SUPPLEMENTATION
     Dosage: TOTAL DAILY DOSE: 1 DF  UNIT DOSE: 1 DF
     Route: 048
  3. UNKNOWN ANTIINFLAMMATORY MEDICATION NOS [Suspect]
     Indication: LIMB CRUSHING INJURY
     Route: 048
  4. UNKNOWN BLOOD THINNER [Suspect]
     Indication: ANTICOAGULANT THERAPY
     Dates: start: 20080101
  5. ONE A DAY WEIGHTSMART ADVANCED [Suspect]
     Indication: VITAMIN SUPPLEMENTATION
  6. FISH OIL [Concomitant]
  7. TYLENOL [Concomitant]
  8. HIGH BLOOD PRESSURE MEDICATION [Concomitant]
  9. CHOLESTEROL MEDICATION [Concomitant]
  10. BONE VITAMINS [Concomitant]
  11. WATER PILL [Concomitant]

REACTIONS (1)
  - RECTAL HAEMORRHAGE [None]
